FAERS Safety Report 25654810 (Version 1)
Quarter: 2025Q3

REPORT INFORMATION
  Report Type: Spontaneous
  Country: BR (occurrence: BR)
  Receive Date: 20250807
  Receipt Date: 20250807
  Transmission Date: 20251020
  Serious: Yes (Other)
  Sender: RANBAXY
  Company Number: BR-SUN PHARMACEUTICAL INDUSTRIES INC-2025R1-521316

PATIENT
  Age: 15 Year
  Sex: Male

DRUGS (2)
  1. PROMETHAZINE [Suspect]
     Active Substance: PROMETHAZINE HYDROCHLORIDE
     Indication: Jaundice
     Route: 065
  2. CHOLESTYRAMINE [Suspect]
     Active Substance: CHOLESTYRAMINE
     Indication: Jaundice
     Route: 065

REACTIONS (4)
  - Condition aggravated [Unknown]
  - International normalised ratio increased [Recovered/Resolved]
  - Weight decreased [Recovered/Resolved]
  - Blood bilirubin increased [Recovered/Resolved]
